FAERS Safety Report 21785681 (Version 4)
Quarter: 2023Q2

REPORT INFORMATION
  Report Type: Spontaneous
  Country: JP (occurrence: JP)
  Receive Date: 20221227
  Receipt Date: 20230413
  Transmission Date: 20230722
  Serious: Yes (Hospitalization, Disabling, Other)
  Sender: FDA-Public Use
  Company Number: JP-NBI-J202220590BIPI

PATIENT
  Age: 58 Year
  Sex: Female

DRUGS (1)
  1. OFEV [Suspect]
     Active Substance: NINTEDANIB
     Indication: Interstitial lung disease
     Route: 048
     Dates: start: 20221201

REACTIONS (12)
  - Coronavirus infection [Recovered/Resolved with Sequelae]
  - Neoplasm malignant [Unknown]
  - Flatulence [Not Recovered/Not Resolved]
  - Faeces soft [Not Recovered/Not Resolved]
  - Abdominal pain [Not Recovered/Not Resolved]
  - Headache [Recovered/Resolved]
  - Decreased appetite [Not Recovered/Not Resolved]
  - Dyspnoea exertional [Not Recovered/Not Resolved]
  - Cough [Not Recovered/Not Resolved]
  - Dyspnoea [Not Recovered/Not Resolved]
  - Discouragement [Not Recovered/Not Resolved]
  - KL-6 increased [Not Recovered/Not Resolved]

NARRATIVE: CASE EVENT DATE: 20221203
